FAERS Safety Report 14381258 (Version 3)
Quarter: 2018Q1

REPORT INFORMATION
  Report Type: Report from Study
  Country: US (occurrence: US)
  Receive Date: 20180112
  Receipt Date: 20180223
  Transmission Date: 20180509
  Serious: Yes (Hospitalization, Other)
  Sender: FDA-Public Use
  Company Number: US-GLAXOSMITHKLINE-US2017202956

PATIENT
  Sex: Female

DRUGS (4)
  1. ADCIRCA [Concomitant]
     Active Substance: TADALAFIL
     Dosage: 20 MG, BID
  2. EPOPROSTENOL. [Suspect]
     Active Substance: EPOPROSTENOL
     Dosage: 1.5 MG, UNK
     Route: 065
  3. AMBRISENTAN [Suspect]
     Active Substance: AMBRISENTAN
     Indication: PULMONARY HYPERTENSION
     Dosage: 10 MG, QD
     Route: 065
     Dates: start: 20100908
  4. EPOPROSTENOL. [Suspect]
     Active Substance: EPOPROSTENOL
     Indication: PULMONARY HYPERTENSION
     Dosage: 10 NG, UNK
     Route: 065

REACTIONS (4)
  - Device related infection [Unknown]
  - Pulmonary arterial hypertension [Unknown]
  - Intentional dose omission [Unknown]
  - Dyspnoea [Not Recovered/Not Resolved]
